FAERS Safety Report 10291818 (Version 2)
Quarter: 2014Q3

REPORT INFORMATION
  Report Type: Spontaneous
  Country: US (occurrence: US)
  Receive Date: 20140710
  Receipt Date: 20140717
  Transmission Date: 20150326
  Serious: No
  Sender: FDA-Public Use
  Company Number: US-009507513-1407USA004527

PATIENT
  Sex: Female

DRUGS (1)
  1. NEXPLANON [Suspect]
     Active Substance: ETONOGESTREL
     Indication: CONTRACEPTION
     Dosage: 1 SINGLE ROD
     Route: 059
     Dates: start: 20140430, end: 20140617

REACTIONS (3)
  - Device extrusion [Unknown]
  - Implant site infection [Unknown]
  - Implant site erythema [Unknown]

NARRATIVE: CASE EVENT DATE: 2014
